FAERS Safety Report 7462407-8 (Version None)
Quarter: 2011Q2

REPORT INFORMATION
  Report Type: 
  Country: None (occurrence: None)
  Receive Date: 20110506
  Receipt Date: 20110503
  Transmission Date: 20111010
  Serious: Yes (Other)
  Sender: FDA-Public Use
  Company Number: US-BRISTOL-MYERS SQUIBB COMPANY-15375207

PATIENT
  Age: 67 Year
  Sex: Male

DRUGS (4)
  1. RAMIPRIL [Concomitant]
  2. LIPITOR [Concomitant]
  3. ONGLYZA [Suspect]
  4. METFORMIN [Concomitant]

REACTIONS (2)
  - ANAPHYLACTIC REACTION [None]
  - DIARRHOEA [None]
